FAERS Safety Report 24028344 (Version 1)
Quarter: 2024Q2

REPORT INFORMATION
  Report Type: Report from Study
  Country: AU (occurrence: AU)
  Receive Date: 20240628
  Receipt Date: 20240628
  Transmission Date: 20240715
  Serious: Yes (Hospitalization, Other)
  Sender: FDA-Public Use
  Company Number: AU-BAYER-2024A089836

PATIENT

DRUGS (4)
  1. NAPROXEN [Suspect]
     Active Substance: NAPROXEN
     Dosage: 4000 MG
  2. DICLOFENAC [Suspect]
     Active Substance: DICLOFENAC
  3. ALCOHOL [Suspect]
     Active Substance: ALCOHOL
  4. ORPHENADRINE [Suspect]
     Active Substance: ORPHENADRINE

REACTIONS (6)
  - Delirium [None]
  - Somnolence [None]
  - Seizure [None]
  - Toxicity to various agents [None]
  - Electrocardiogram QRS complex [None]
  - Overdose [None]
